FAERS Safety Report 7401254-X (Version None)
Quarter: 2011Q2

REPORT INFORMATION
  Report Type: 
  Country: None (occurrence: None)
  Receive Date: 20110407
  Receipt Date: 20110328
  Transmission Date: 20111010
  Serious: Yes (Hospitalization)
  Sender: FDA-Public Use
  Company Number: FR-ELI_LILLY_AND_COMPANY-FR201103007981

PATIENT
  Sex: Female
  Weight: 78 kg

DRUGS (3)
  1. AVASTIN [Concomitant]
     Indication: OVARIAN CANCER
     Dosage: UNK, UNKNOWN
     Route: 042
     Dates: start: 20110214, end: 20110214
  2. ELOXATIN [Concomitant]
     Indication: OVARIAN CANCER
     Dosage: UNK, UNKNOWN
     Route: 042
     Dates: start: 20110214, end: 20110214
  3. GEMZAR [Suspect]
     Indication: OVARIAN CANCER
     Dosage: UNK, UNKNOWN
     Route: 042
     Dates: start: 20110214, end: 20110214

REACTIONS (4)
  - DYSPNOEA [None]
  - HOT FLUSH [None]
  - NAUSEA [None]
  - ERYTHEMA [None]
